FAERS Safety Report 5412796-0 (Version None)
Quarter: 2007Q3

REPORT INFORMATION
  Report Type: 
  Country: None (occurrence: None)
  Receive Date: 20070713
  Receipt Date: 20070323
  Transmission Date: 20080115
  Serious: No
  Sender: FDA-Public Use
  Company Number: 2007SP001064

PATIENT
  Age: 43 Year
  Sex: Female
  Weight: 86.1834 kg

DRUGS (6)
  1. LUNESTA [Suspect]
     Indication: INSOMNIA
     Dosage: 2 MG; ORAL
     Route: 048
     Dates: start: 20070322
  2. ESTRATEST [Concomitant]
  3. GLUCOPHAGE [Concomitant]
  4. METOCLOPRAMINE [Concomitant]
  5. PRILOSEC [Concomitant]
  6. SIMVASTATIN [Concomitant]

REACTIONS (1)
  - INITIAL INSOMNIA [None]
